FAERS Safety Report 4683951-2 (Version None)
Quarter: 2005Q2

REPORT INFORMATION
  Report Type: 
  Country: None (occurrence: None)
  Receive Date: 20050607
  Receipt Date: 20050310
  Transmission Date: 20051028
  Serious: Yes (Hospitalization, Disabling, Other)
  Sender: FDA-Public Use
  Company Number: US-MERCK-0503USA02382

PATIENT
  Age: 48 Year
  Sex: Male
  Weight: 82 kg

DRUGS (9)
  1. VIOXX [Suspect]
     Indication: ARTHRALGIA
     Route: 048
     Dates: start: 20010701, end: 20040101
  2. VIOXX [Suspect]
     Route: 048
     Dates: start: 20010701, end: 20040101
  3. VIOXX [Suspect]
     Route: 048
     Dates: start: 20010701, end: 20040101
  4. VIOXX [Suspect]
     Route: 048
     Dates: start: 20010701, end: 20040101
  5. VIOXX [Suspect]
     Indication: OSTEOARTHRITIS
     Route: 048
     Dates: start: 20010701, end: 20040101
  6. VIOXX [Suspect]
     Route: 048
     Dates: start: 20010701, end: 20040101
  7. VIOXX [Suspect]
     Route: 048
     Dates: start: 20010701, end: 20040101
  8. VIOXX [Suspect]
     Route: 048
     Dates: start: 20010701, end: 20040101
  9. GLUCOPHAGE [Concomitant]
     Route: 065

REACTIONS (51)
  - ACNE [None]
  - ADRENAL MASS [None]
  - ALCOHOLISM [None]
  - ALPHA HAEMOLYTIC STREPTOCOCCAL INFECTION [None]
  - ANGINA PECTORIS [None]
  - ANOREXIA [None]
  - ANXIETY [None]
  - BACTERAEMIA [None]
  - BACTEROIDES INFECTION [None]
  - BLOOD CHOLESTEROL INCREASED [None]
  - BLOOD SODIUM INCREASED [None]
  - CARDIAC FAILURE [None]
  - CARDIAC FAILURE CONGESTIVE [None]
  - CHEST PAIN [None]
  - CHILLS [None]
  - CONGESTIVE CARDIOMYOPATHY [None]
  - COUGH [None]
  - DEHYDRATION [None]
  - DIABETES MELLITUS INADEQUATE CONTROL [None]
  - DIABETIC COMA [None]
  - DIARRHOEA [None]
  - DIZZINESS [None]
  - DYSPEPSIA [None]
  - EMOTIONAL DISTRESS [None]
  - EYE PAIN [None]
  - GASTROOESOPHAGEAL REFLUX DISEASE [None]
  - HEART RATE IRREGULAR [None]
  - HYPERHIDROSIS [None]
  - HYPERLIPIDAEMIA [None]
  - HYPERTENSION [None]
  - HYPOMAGNESAEMIA [None]
  - INSOMNIA [None]
  - LIVER ABSCESS [None]
  - MUSCLE SPASMS [None]
  - MYOCARDIAL INFARCTION [None]
  - NASAL CONGESTION [None]
  - OBESITY [None]
  - OSTEOARTHRITIS [None]
  - PANIC DISORDER [None]
  - PLATELET COUNT DECREASED [None]
  - PYREXIA [None]
  - RESTLESS LEGS SYNDROME [None]
  - SINUS TACHYCARDIA [None]
  - SLEEP APNOEA SYNDROME [None]
  - SUPRAVENTRICULAR TACHYCARDIA [None]
  - SWEAT GLAND INFECTION [None]
  - SYNCOPE [None]
  - UPPER LIMB FRACTURE [None]
  - VENTRICULAR DYSFUNCTION [None]
  - VENTRICULAR HYPERTROPHY [None]
  - WEIGHT INCREASED [None]
